FAERS Safety Report 4310067-7 (Version None)
Quarter: 2004Q1

REPORT INFORMATION
  Report Type: 
  Country: None (occurrence: None)
  Receive Date: 20040301
  Receipt Date: 20031031
  Transmission Date: 20041129
  Serious: No
  Sender: FDA-Public Use
  Company Number: WAES 0310USA01718

PATIENT
  Age: 64 Year
  Sex: Female
  Weight: 74.3899 kg

DRUGS (5)
  1. ZETIA [Suspect]
     Indication: HYPERLIPIDAEMIA
     Dosage: 10 MG/DAILY/PO
     Route: 048
     Dates: start: 20030827, end: 20031002
  2. ATACAND [Concomitant]
  3. CATAPRES [Concomitant]
  4. INDERAL LA [Concomitant]
  5. LEVOXYL [Concomitant]

REACTIONS (2)
  - DERMATITIS [None]
  - RASH [None]
